FAERS Safety Report 7420499-6 (Version None)
Quarter: 2011Q2

REPORT INFORMATION
  Report Type: 
  Country: None (occurrence: None)
  Receive Date: 20110407
  Receipt Date: 20110401
  Transmission Date: 20111010
  Serious: Yes (Other)
  Sender: FDA-Public Use
  Company Number: DSU-2011-02241

PATIENT
  Age: 63 Year
  Sex: Male
  Weight: 122.4712 kg

DRUGS (8)
  1. SIMVASTATIN [Concomitant]
  2. TRIBENZOR [Suspect]
     Indication: HYPERTENSION
     Dosage: (QD), PER ORAL
     Route: 048
     Dates: end: 20110201
  3. RANITIDINE [Concomitant]
  4. GLIMEPIRIDE [Concomitant]
  5. ATENOLOL [Concomitant]
  6. ASPIRIN [Concomitant]
  7. TIZANIDINE HCL [Concomitant]
  8. HYDROCODONE BITARTRATE AND ACETAMINOPHEN [Concomitant]

REACTIONS (9)
  - WEIGHT INCREASED [None]
  - DIZZINESS [None]
  - DRY MOUTH [None]
  - OEDEMA PERIPHERAL [None]
  - SWELLING FACE [None]
  - DYSPNOEA [None]
  - FALL [None]
  - ASTHENIA [None]
  - ROAD TRAFFIC ACCIDENT [None]
